FAERS Safety Report 4353745-6 (Version None)
Quarter: 2004Q2

REPORT INFORMATION
  Report Type: 
  Country: None (occurrence: None)
  Receive Date: 20040505
  Receipt Date: 20000602
  Transmission Date: 20050107
  Serious: Yes (Life-Threatening, Hospitalization)
  Sender: FDA-Public Use
  Company Number: DE-MERCK-00065503

PATIENT
  Age: 51 Year
  Sex: Female
  Weight: 70 kg

DRUGS (9)
  1. DICLOFENAC SODIUM [Suspect]
     Route: 048
  2. EQUILIN SODIUM SULFATE AND ESTRONE SODIUM SULFATE [Suspect]
     Indication: MENOPAUSAL SYMPTOMS
     Route: 048
     Dates: start: 19930101
  3. HYDROCHLOROTHIAZIDE AND QUINAPRIL [Suspect]
     Route: 048
     Dates: start: 19950101, end: 20000401
  4. ISOSORBIDE MONONITRATE [Suspect]
     Indication: ANGINA PECTORIS
     Route: 048
     Dates: start: 19940101, end: 20000301
  5. MEDROGESTONE [Suspect]
     Route: 048
     Dates: start: 19930101
  6. METOPROLOL SUCCINATE [Suspect]
     Indication: HYPERTENSION
     Route: 048
     Dates: start: 19900101
  7. PHENPROCOUMON [Suspect]
     Indication: AORTIC VALVE REPLACEMENT
     Route: 048
     Dates: start: 19810101
  8. VIOXX [Suspect]
     Indication: OSTEOARTHRITIS
     Route: 048
     Dates: start: 20000201, end: 20000410
  9. VIOXX [Suspect]
     Route: 048
     Dates: start: 20000201, end: 20000410

REACTIONS (5)
  - ANTINUCLEAR ANTIBODY POSITIVE [None]
  - CHOLESTASIS [None]
  - DIALYSIS [None]
  - HEPATIC FAILURE [None]
  - PRURITUS [None]
